FAERS Safety Report 20602041 (Version 1)
Quarter: 2022Q1

REPORT INFORMATION
  Report Type: Spontaneous
  Country: CN (occurrence: CN)
  Receive Date: 20220316
  Receipt Date: 20220316
  Transmission Date: 20220423
  Serious: Yes (Death, Hospitalization, Other)
  Sender: FDA-Public Use
  Company Number: CN-Accord-257237

PATIENT
  Age: 32 Year
  Sex: Female

DRUGS (1)
  1. METHOTREXATE [Suspect]
     Active Substance: METHOTREXATE
     Indication: Abortion induced
     Route: 030

REACTIONS (26)
  - Disturbance in attention [Unknown]
  - Somnolence [Unknown]
  - Condition aggravated [Unknown]
  - Mouth ulceration [Unknown]
  - Haematoma [Unknown]
  - Petechiae [Unknown]
  - Ecchymosis [Unknown]
  - Sepsis [Fatal]
  - Septic shock [Fatal]
  - Multiple organ dysfunction syndrome [Fatal]
  - Haemorrhage [Fatal]
  - Abdominal infection [Fatal]
  - Myelosuppression [Fatal]
  - Dermatitis exfoliative [Fatal]
  - Hydronephrosis [Fatal]
  - Hepatic steatosis [Fatal]
  - Hypernatraemia [Fatal]
  - Hyperchloraemia [Fatal]
  - Acute pulmonary oedema [Fatal]
  - Pulmonary congestion [Fatal]
  - Mucosal haemorrhage [Fatal]
  - Renal impairment [Fatal]
  - Liver function test abnormal [Fatal]
  - Cyanosis [Unknown]
  - Pancytopenia [Fatal]
  - Pneumonia [Fatal]
